FAERS Safety Report 10156561 (Version 1)
Quarter: 2014Q2

REPORT INFORMATION
  Report Type: Spontaneous
  Country: GB (occurrence: None)
  Receive Date: 20140505
  Receipt Date: 20140505
  Transmission Date: 20141212
  Serious: Yes (Other)
  Sender: FDA-Public Use
  Company Number: SYM-2014-19978

PATIENT
  Age: 65 Year
  Sex: Male

DRUGS (5)
  1. METRONIDAZOLE [Suspect]
     Indication: ORAL INFECTION
  2. ADCAL (CARBAZOCHROME) (CARBAZOCHROME) [Concomitant]
  3. AMLODIPINE (AMLODIPINE) [Concomitant]
  4. FERROUS FUMARATE (FERROUS FUMARATE) [Concomitant]
  5. LISINOPRIL (LISINOPRIL) [Concomitant]

REACTIONS (2)
  - Oral candidiasis [None]
  - Mouth ulceration [None]
